FAERS Safety Report 4677122-3 (Version None)
Quarter: 2005Q2

REPORT INFORMATION
  Report Type: 
  Country: None (occurrence: None)
  Receive Date: 20050525
  Receipt Date: 20050525
  Transmission Date: 20051028
  Serious: Yes (Other)
  Sender: FDA-Public Use
  Company Number: None

PATIENT
  Sex: Female
  Weight: 76.6579 kg

DRUGS (2)
  1. VIOXX [Suspect]
     Indication: FIBROMYALGIA
     Dosage: 1 TABLET   TWICE A DAY   BUCCAL
     Route: 002
  2. VIOXX [Suspect]
     Indication: PAIN
     Dosage: 1 TABLET   TWICE A DAY   BUCCAL
     Route: 002

REACTIONS (1)
  - HYPERTENSION [None]
